FAERS Safety Report 7244419-2 (Version None)
Quarter: 2011Q1

REPORT INFORMATION
  Report Type: 
  Country: None (occurrence: None)
  Receive Date: 20110125
  Receipt Date: 20110119
  Transmission Date: 20110831
  Serious: Yes (Life-Threatening, Hospitalization)
  Sender: FDA-Public Use
  Company Number: CH-ROCHE-754855

PATIENT
  Age: 64 Year
  Sex: Male
  Weight: 86 kg

DRUGS (10)
  1. AVASTIN [Suspect]
     Dosage: 1X/3 WEEKS
     Route: 042
     Dates: start: 20100101
  2. XELODA [Suspect]
     Dosage: 2 CYCLES
     Route: 048
     Dates: start: 20090301, end: 20090401
  3. IRINOTECAN HCL [Concomitant]
     Dosage: 2 CYCLES
     Dates: start: 20090301, end: 20090401
  4. XELODA [Suspect]
     Dosage: 7 CYCLES
     Route: 048
     Dates: start: 20081201, end: 20090301
  5. XELODA [Suspect]
     Dosage: DOSAGE REDUCED, LAST DOSE PRIOR TO SAE: 15 DEC 2010
     Route: 048
     Dates: start: 20100901
  6. IRINOTECAN HCL [Concomitant]
     Dosage: 7 CYCLES
     Dates: start: 20081201, end: 20090301
  7. XELODA [Suspect]
     Route: 048
     Dates: start: 20090501, end: 20090901
  8. AVASTIN [Suspect]
     Dosage: 7 CYCLES, STOPPED DUE TO PULMONARY EMBOLISM.
     Route: 042
     Dates: start: 20081201, end: 20090401
  9. OXALIPLATIN [Concomitant]
     Indication: METASTASES TO SPINE
     Dates: start: 20100101
  10. XELODA [Suspect]
     Dosage: FREQUENCY: 14 OF 28 DAYS, 2/DAY
     Route: 048
     Dates: start: 20100101, end: 20100816

REACTIONS (6)
  - BLOOD AMYLASE INCREASED [None]
  - LACTIC ACIDOSIS [None]
  - RENAL FAILURE ACUTE [None]
  - LIPASE INCREASED [None]
  - HAEMOLYTIC ANAEMIA [None]
  - HEPATIC ENZYME INCREASED [None]
